FAERS Safety Report 14987045 (Version 1)
Quarter: 2018Q2

REPORT INFORMATION
  Report Type: Spontaneous
  Country: US (occurrence: US)
  Receive Date: 20180608
  Receipt Date: 20180608
  Transmission Date: 20180711
  Serious: No
  Sender: FDA-Public Use
  Company Number: US-SUN PHARMACEUTICAL INDUSTRIES LTD-2018US-162508

PATIENT
  Sex: Male

DRUGS (3)
  1. MORPHINE [Suspect]
     Active Substance: MORPHINE
     Indication: BACK PAIN
     Dosage: 2 DF IN MORNING, 1DF AT LUNCH AND 2 DF IN NIGHT
     Route: 065
  2. MORPHINE [Suspect]
     Active Substance: MORPHINE
     Indication: ARTHRALGIA
  3. MORPHINE [Suspect]
     Active Substance: MORPHINE
     Indication: SPINAL PAIN

REACTIONS (1)
  - Therapeutic response decreased [Unknown]
